FAERS Safety Report 13050365 (Version 3)
Quarter: 2017Q2

REPORT INFORMATION
  Report Type: Spontaneous
  Country: SG (occurrence: SG)
  Receive Date: 20161221
  Receipt Date: 20170615
  Transmission Date: 20170830
  Serious: Yes (Hospitalization, Other)
  Sender: FDA-Public Use
  Company Number: SG-009507513-1612SGP008211

PATIENT
  Age: 51 Year
  Sex: Female

DRUGS (2)
  1. OMEPRAZOLE. [Concomitant]
     Active Substance: OMEPRAZOLE
     Dosage: 20 MG, BD
     Route: 048
     Dates: start: 20110107, end: 20160605
  2. KEYTRUDA [Suspect]
     Active Substance: PEMBROLIZUMAB
     Indication: NASOPHARYNGEAL CANCER METASTATIC
     Dosage: 100 MG, Q3W (ALSO REPORTED AS 100 MG 3 WEEKLY), FIFTH LINE TREATMENT
     Route: 042
     Dates: start: 20160113, end: 20160518

REACTIONS (2)
  - Stevens-Johnson syndrome [Recovered/Resolved]
  - Product use in unapproved indication [Unknown]

NARRATIVE: CASE EVENT DATE: 20160601
